FAERS Safety Report 10498466 (Version 1)
Quarter: 2014Q4

REPORT INFORMATION
  Report Type: Spontaneous
  Country: BR (occurrence: BR)
  Receive Date: 20141006
  Receipt Date: 20141006
  Transmission Date: 20150528
  Serious: Yes (Hospitalization)
  Sender: FDA-Public Use
  Company Number: US-ASTRAZENECA-2014SE73857

PATIENT
  Sex: Male
  Weight: 6.3 kg

DRUGS (5)
  1. FERROUS SULFATE [Concomitant]
     Active Substance: FERROUS SULFATE\FERROUS SULFATE, DRIED
     Indication: BLOOD DISORDER
     Route: 048
  2. FERROUS SULFATE [Concomitant]
     Active Substance: FERROUS SULFATE\FERROUS SULFATE, DRIED
     Indication: BONE DISORDER
     Route: 048
  3. RETINOL ACETATE/CHOLECALCIFEROL (AD-TIL) [Concomitant]
     Indication: PREMATURE BABY
     Route: 048
  4. SYNAGIS [Suspect]
     Active Substance: PALIVIZUMAB
     Indication: PREMATURE BABY
     Route: 030
     Dates: start: 20140721
  5. RETINOL ACETATE/CHOLECALCIFEROL (AD-TIL) [Concomitant]
     Indication: VITAMIN SUPPLEMENTATION
     Route: 048

REACTIONS (5)
  - Pyrexia [Not Recovered/Not Resolved]
  - Respiratory tract congestion [Unknown]
  - Immune system disorder [Unknown]
  - Pneumonia [Not Recovered/Not Resolved]
  - Respiration abnormal [Not Recovered/Not Resolved]
